FAERS Safety Report 5787017-X (Version None)
Quarter: 2008Q2

REPORT INFORMATION
  Report Type: 
  Country: None (occurrence: None)
  Receive Date: 20080625
  Receipt Date: 20080229
  Transmission Date: 20081010
  Serious: No
  Sender: FDA-Public Use
  Company Number: US-BAYER-200815901NA

PATIENT
  Age: 30 Year
  Sex: Female

DRUGS (2)
  1. YASMIN [Suspect]
     Indication: CONTRACEPTION
     Route: 048
     Dates: start: 20070601
  2. PHENTRIMINE [Concomitant]
     Indication: WEIGHT DECREASED

REACTIONS (2)
  - METRORRHAGIA [None]
  - WITHDRAWAL BLEED [None]
